FAERS Safety Report 8177103-1 (Version None)
Quarter: 2012Q1

REPORT INFORMATION
  Report Type: 
  Country: None (occurrence: None)
  Receive Date: 20120301
  Receipt Date: 20120214
  Transmission Date: 20120608
  Serious: Yes (Other)
  Sender: FDA-Public Use
  Company Number: CA-GLAXOSMITHKLINE-A0965745A

PATIENT
  Sex: Male
  Weight: 78.2 kg

DRUGS (2)
  1. DUKORAL [Concomitant]
     Indication: DIARRHOEA INFECTIOUS
     Dates: start: 20110624
  2. MALARONE [Suspect]
     Indication: MALARIA PROPHYLAXIS
     Dosage: 250MG PER DAY
     Route: 048
     Dates: start: 20110705, end: 20110809

REACTIONS (5)
  - CHILLS [None]
  - DRUG INEFFECTIVE [None]
  - PYREXIA [None]
  - MALARIA [None]
  - MALAISE [None]
